FAERS Safety Report 10136302 (Version 1)
Quarter: 2014Q2

REPORT INFORMATION
  Report Type: Spontaneous
  Country: US (occurrence: US)
  Receive Date: 20140429
  Receipt Date: 20140429
  Transmission Date: 20141212
  Serious: Yes (Other)
  Sender: FDA-Public Use
  Company Number: US-009507513-1404USA013722

PATIENT
  Age: 59 Year
  Sex: Male

DRUGS (5)
  1. REBETOL [Suspect]
     Indication: HEPATITIS C
     Dosage: 600 MG, BID
     Route: 048
     Dates: start: 20140423
  2. PEGASYS [Suspect]
     Indication: HEPATITIS C
     Dosage: 180 MICROGRAM, QW, INJECTION
     Dates: start: 20140423
  3. PRILOSEC [Concomitant]
     Dosage: 40 MG, QD
  4. ALBUTEROL (+) IPRATROPIUM BROMIDE [Concomitant]
     Dosage: NEBULIZED TREATMENT, Q6H
  5. SOVALDI [Concomitant]
     Dosage: 400 MG, QD

REACTIONS (7)
  - Loss of consciousness [Recovering/Resolving]
  - Syncope [Recovering/Resolving]
  - Feeling cold [Recovering/Resolving]
  - Hyperhidrosis [Recovering/Resolving]
  - Chills [Recovering/Resolving]
  - Fatigue [Recovering/Resolving]
  - Malaise [Recovering/Resolving]
